FAERS Safety Report 17597097 (Version 2)
Quarter: 2020Q2

REPORT INFORMATION
  Report Type: Spontaneous
  Country: IR (occurrence: IR)
  Receive Date: 20200330
  Receipt Date: 20200417
  Transmission Date: 20200713
  Serious: Yes (Other)
  Sender: FDA-Public Use
  Company Number: IR-ASTELLAS-2020US011336

PATIENT
  Age: 57 Year
  Sex: Male

DRUGS (7)
  1. ATORVASTATIN [Concomitant]
     Active Substance: ATORVASTATIN
     Indication: PRODUCT USED FOR UNKNOWN INDICATION
     Dosage: 20 MG, ONCE DAILY, STARTED 6 YEARS AGO
     Route: 048
  2. VESICARE [Suspect]
     Active Substance: SOLIFENACIN SUCCINATE
     Indication: HYPERTONIC BLADDER
     Route: 048
     Dates: start: 20200126, end: 20200324
  3. METOHEXAL [METOPROLOL SUCCINATE] [Concomitant]
     Active Substance: METOPROLOL SUCCINATE
     Indication: PRODUCT USED FOR UNKNOWN INDICATION
     Dosage: 47.5 MG, ONCE DAILY, STARTED 6 YEARS AGO
     Route: 048
  4. METFORMIN [Concomitant]
     Active Substance: METFORMIN HYDROCHLORIDE
     Indication: DIABETES MELLITUS
     Dosage: 500 MG, TWICE DAILY, STARTED 6 YEARS AGO
     Route: 048
  5. OMNIC [Concomitant]
     Active Substance: TAMSULOSIN HYDROCHLORIDE
     Indication: BENIGN PROSTATIC HYPERPLASIA
     Dosage: 0.4 MG, ONCE DAILY, STARTED 6 YEARS AGO
     Route: 048
  6. VALSARTAN. [Concomitant]
     Active Substance: VALSARTAN
     Indication: PRODUCT USED FOR UNKNOWN INDICATION
     Dosage: 160 MG, ONCE DAILY, STARTED 6 YEARS AGO
     Route: 048
  7. LIVERGOL [Concomitant]
     Indication: PRODUCT USED FOR UNKNOWN INDICATION
     Dosage: 140 MG, TWICE DAILY, STARTED 6 YEARS AGO
     Route: 048

REACTIONS (2)
  - Coronavirus infection [Recovered/Resolved]
  - Back pain [Recovered/Resolved]

NARRATIVE: CASE EVENT DATE: 20200304
